FAERS Safety Report 25271188 (Version 2)
Quarter: 2025Q2

REPORT INFORMATION
  Report Type: Spontaneous
  Country: VE (occurrence: VE)
  Receive Date: 20250506
  Receipt Date: 20250520
  Transmission Date: 20250716
  Serious: Yes (Life-Threatening, Hospitalization, Other)
  Sender: ALKEM
  Company Number: None

PATIENT
  Age: 15 Year
  Sex: Male

DRUGS (13)
  1. OLANZAPINE [Interacting]
     Active Substance: OLANZAPINE
     Indication: Bipolar II disorder
     Dosage: 10 MILLIGRAM, BID
     Route: 065
  2. QUETIAPINE FUMARATE [Interacting]
     Active Substance: QUETIAPINE FUMARATE
     Indication: Bipolar II disorder
     Dosage: 100 MILLIGRAM, BID
     Route: 065
  3. CLOZAPINE [Interacting]
     Active Substance: CLOZAPINE
     Indication: Bipolar II disorder
     Route: 065
  4. CLOZAPINE [Interacting]
     Active Substance: CLOZAPINE
     Route: 065
  5. CLOZAPINE [Interacting]
     Active Substance: CLOZAPINE
     Dosage: 100 MILLIGRAM, TID
     Route: 065
  6. VALPROATE SODIUM [Interacting]
     Active Substance: VALPROATE SODIUM
     Indication: Bipolar II disorder
     Dosage: 500 MILLIGRAM, TID
     Route: 065
  7. CLONAZEPAM [Concomitant]
     Active Substance: CLONAZEPAM
     Indication: Product used for unknown indication
     Route: 048
  8. DIAZEPAM [Concomitant]
     Active Substance: DIAZEPAM
     Indication: Bipolar II disorder
     Dosage: 10 MILLIGRAM, BID
     Route: 065
  9. LAMOTRIGINE [Concomitant]
     Active Substance: LAMOTRIGINE
     Indication: Bipolar II disorder
     Dosage: 25 MILLIGRAM, BID
     Route: 065
  10. LACTULOSE [Concomitant]
     Active Substance: LACTULOSE
     Indication: Prophylaxis
     Route: 065
  11. LEVETIRACETAM [Concomitant]
     Active Substance: LEVETIRACETAM
     Indication: Product used for unknown indication
     Dosage: 500 MILLIGRAM, BID
     Route: 065
  12. PROPRANOLOL [Concomitant]
     Active Substance: PROPRANOLOL HYDROCHLORIDE
     Indication: Akathisia
     Dosage: 20 MILLIGRAM, BID
     Route: 065
  13. ZUCLOPENTHIXOL [Concomitant]
     Active Substance: ZUCLOPENTHIXOL
     Indication: Product used for unknown indication
     Route: 065

REACTIONS (7)
  - Necrotising colitis [Unknown]
  - Gastrointestinal obstruction [Unknown]
  - Sepsis [Unknown]
  - Drug interaction [Unknown]
  - Renal failure [Unknown]
  - Off label use [Unknown]
  - Therapy partial responder [Unknown]
